FAERS Safety Report 5910372-4 (Version None)
Quarter: 2008Q4

REPORT INFORMATION
  Report Type: 
  Country: None (occurrence: None)
  Receive Date: 20081007
  Receipt Date: 20080107
  Transmission Date: 20090506
  Serious: No
  Sender: FDA-Public Use
  Company Number: US-ASTRAZENECA-2008UW00430

PATIENT
  Age: 63 Year
  Sex: Female
  Weight: 90.7 kg

DRUGS (8)
  1. ARIMIDEX [Suspect]
     Indication: BREAST CANCER
     Route: 048
     Dates: start: 20071001
  2. ROBITUSSIN [Concomitant]
     Indication: COUGH
  3. ATIVAN [Concomitant]
  4. ELAVIL [Concomitant]
  5. PEPCID [Concomitant]
  6. CRESTOR [Concomitant]
  7. ATENOLOL [Concomitant]
     Indication: BLOOD PRESSURE INCREASED
  8. TYLENOL (CAPLET) [Concomitant]

REACTIONS (5)
  - APHASIA [None]
  - BACK PAIN [None]
  - COUGH [None]
  - MOOD SWINGS [None]
  - WEIGHT INCREASED [None]
